FAERS Safety Report 12390839 (Version 1)
Quarter: 2016Q2

REPORT INFORMATION
  Report Type: Spontaneous
  Country: US (occurrence: US)
  Receive Date: 20160520
  Receipt Date: 20160520
  Transmission Date: 20160815
  Serious: Yes (Hospitalization, Other)
  Sender: FDA-Public Use
  Company Number: US-GLAXOSMITHKLINE-US2016071006

PATIENT
  Age: 35 Year
  Sex: Female

DRUGS (11)
  1. BENLYSTA [Suspect]
     Active Substance: BELIMUMAB
     Indication: SYSTEMIC LUPUS ERYTHEMATOSUS
     Dosage: UNK
     Route: 042
     Dates: start: 201305
  2. MAGNESIUM [Concomitant]
     Active Substance: MAGNESIUM
  3. DYAZIDE [Concomitant]
     Active Substance: HYDROCHLOROTHIAZIDE\TRIAMTERENE
  4. LASIX [Concomitant]
     Active Substance: FUROSEMIDE
  5. GABAPENTIN. [Concomitant]
     Active Substance: GABAPENTIN
  6. PROZAC [Concomitant]
     Active Substance: FLUOXETINE HYDROCHLORIDE
  7. ARAVA [Concomitant]
     Active Substance: LEFLUNOMIDE
  8. VITAMIN C [Concomitant]
     Active Substance: ASCORBIC ACID
  9. WELLBUTRIN [Concomitant]
     Active Substance: BUPROPION HYDROCHLORIDE
  10. CALCIUM [Concomitant]
     Active Substance: CALCIUM
  11. CELLCEPT [Concomitant]
     Active Substance: MYCOPHENOLATE MOFETIL\MYCOPHENOLATE MOFETIL HYDROCHLORIDE

REACTIONS (7)
  - Pneumonia [Recovered/Resolved]
  - Anaemia [Not Recovered/Not Resolved]
  - Sepsis [Recovered/Resolved]
  - Haematocrit decreased [Not Recovered/Not Resolved]
  - Haemoglobin decreased [Not Recovered/Not Resolved]
  - Cellulitis [Unknown]
  - Transfusion [Unknown]

NARRATIVE: CASE EVENT DATE: 201309
